FAERS Safety Report 5315915-X (Version None)
Quarter: 2007Q2

REPORT INFORMATION
  Report Type: 
  Country: None (occurrence: None)
  Receive Date: 20070503
  Receipt Date: 20070427
  Transmission Date: 20071010
  Serious: Yes (Hospitalization)
  Sender: FDA-Public Use
  Company Number: US-GENENTECH-239357

PATIENT
  Sex: Female
  Weight: 65.306 kg

DRUGS (11)
  1. ERLOTINIB [Suspect]
     Indication: COLON CANCER
     Dosage: 150 MG, QD
     Route: 048
     Dates: start: 20070126
  2. AVASTIN [Suspect]
     Indication: COLON CANCER
     Dosage: 152 MG, 2/MONTH
     Route: 042
     Dates: start: 20070208
  3. OXALIPLATIN [Suspect]
     Indication: COLON CANCER
     Dosage: 152 MG, 2/MONTH
     Route: 042
     Dates: start: 20070208
  4. LEUCOVORIN CALCIUM [Suspect]
     Indication: COLON CANCER
     Dosage: 716 MG, 2/MONTH
     Route: 042
     Dates: start: 20070208
  5. FLUOROURACIL [Suspect]
     Indication: COLON CANCER
     Dosage: 4296 MG/M2, 2/MONTH
     Route: 042
     Dates: start: 20070208
  6. FLUOROURACIL [Suspect]
     Dosage: 716 MG/M2, 2/MONTH
     Route: 042
     Dates: start: 20070208
  7. PROZAC [Concomitant]
     Indication: DRUG USE FOR UNKNOWN INDICATION
     Dosage: UNK MG, UNK
     Dates: start: 20070208
  8. LOVENOX [Concomitant]
     Indication: DRUG USE FOR UNKNOWN INDICATION
     Dosage: UNK MG, QD
     Dates: start: 20070208
  9. IRON [Concomitant]
     Indication: DRUG USE FOR UNKNOWN INDICATION
     Dates: start: 20070208
  10. PERCOCET-5 [Concomitant]
     Dosage: 325 MG, PRN
  11. KYTRIL [Concomitant]
     Indication: DRUG USE FOR UNKNOWN INDICATION
     Dosage: 1 MG, BID
     Dates: start: 20070208

REACTIONS (1)
  - NEPHROLITHIASIS [None]
